FAERS Safety Report 23879467 (Version 8)
Quarter: 2025Q1

REPORT INFORMATION
  Report Type: Report from Study
  Country: CA (occurrence: CA)
  Receive Date: 20240521
  Receipt Date: 20250116
  Transmission Date: 20250409
  Serious: Yes (Hospitalization)
  Sender: TAKEDA
  Company Number: CA-TAKEDA-2024TUS029470

PATIENT
  Sex: Male

DRUGS (7)
  1. VEDOLIZUMAB [Suspect]
     Active Substance: VEDOLIZUMAB
     Indication: Crohn^s disease
  2. VEDOLIZUMAB [Suspect]
     Active Substance: VEDOLIZUMAB
  3. VEDOLIZUMAB [Suspect]
     Active Substance: VEDOLIZUMAB
  4. VEDOLIZUMAB [Suspect]
     Active Substance: VEDOLIZUMAB
  5. VEDOLIZUMAB [Suspect]
     Active Substance: VEDOLIZUMAB
  6. VEDOLIZUMAB [Suspect]
     Active Substance: VEDOLIZUMAB
  7. ELIQUIS [Concomitant]
     Active Substance: APIXABAN

REACTIONS (8)
  - Diarrhoea [Recovered/Resolved]
  - Pain [Recovered/Resolved]
  - Nervous system disorder [Unknown]
  - Cognitive disorder [Unknown]
  - General physical health deterioration [Unknown]
  - Product dose omission issue [Unknown]
  - Fall [Unknown]
  - Abdominal pain [Unknown]
